FAERS Safety Report 17591593 (Version 1)
Quarter: 2020Q1

REPORT INFORMATION
  Report Type: Spontaneous
  Country: US (occurrence: US)
  Receive Date: 20200326
  Receipt Date: 20200326
  Transmission Date: 20200409
  Serious: Yes (Other)
  Sender: FDA-Public Use
  Company Number: None

PATIENT
  Age: 61 Year
  Sex: Female

DRUGS (1)
  1. NINLARO [Suspect]
     Active Substance: IXAZOMIB CITRATE
     Indication: PLASMA CELL MYELOMA
     Dosage: ?          OTHER FREQUENCY:DAY 1,8,15;?
     Route: 048
     Dates: start: 20200302, end: 20200308

REACTIONS (6)
  - Vomiting [None]
  - Peripheral swelling [None]
  - Dehydration [None]
  - Therapy cessation [None]
  - Nausea [None]
  - Pain in extremity [None]

NARRATIVE: CASE EVENT DATE: 20200308
